FAERS Safety Report 9553212 (Version 2)
Quarter: 2013Q3

REPORT INFORMATION
  Report Type: Spontaneous
  Country: CN (occurrence: CN)
  Receive Date: 20130925
  Receipt Date: 20130925
  Transmission Date: 20140515
  Serious: Yes (Hospitalization)
  Sender: FDA-Public Use
  Company Number: CN-PFIZER INC-2013267186

PATIENT
  Age: 15 Year
  Sex: Female
  Weight: 59 kg

DRUGS (2)
  1. DAUNOBLASTINA [Suspect]
     Indication: ACUTE LEUKAEMIA
     Dosage: 80 MG, ONCE DAILY
     Route: 041
     Dates: start: 20120825, end: 20120827
  2. CYTOSAR [Suspect]
     Indication: ACUTE LEUKAEMIA
     Dosage: 200 MG, ONCE DAILY
     Route: 041
     Dates: start: 20120825, end: 20120902

REACTIONS (1)
  - Bone marrow failure [Recovering/Resolving]
